FAERS Safety Report 25109719 (Version 1)
Quarter: 2025Q1

REPORT INFORMATION
  Report Type: Spontaneous
  Country: PT (occurrence: PT)
  Receive Date: 20250323
  Receipt Date: 20250323
  Transmission Date: 20250409
  Serious: Yes (Death, Other)
  Sender: ASTELLAS
  Company Number: PT-ASTELLAS-2025-AER-016192

PATIENT
  Age: 56 Year
  Sex: Female

DRUGS (22)
  1. GILTERITINIB [Suspect]
     Active Substance: GILTERITINIB
     Indication: Acute myeloid leukaemia recurrent
     Route: 065
     Dates: start: 20210812, end: 20210902
  2. GILTERITINIB [Suspect]
     Active Substance: GILTERITINIB
     Indication: FLT3 gene mutation
     Route: 065
     Dates: start: 20211114
  3. CYTARABINE [Suspect]
     Active Substance: CYTARABINE
     Indication: Acute myeloid leukaemia recurrent
     Route: 065
     Dates: start: 20200702
  4. CYTARABINE [Suspect]
     Active Substance: CYTARABINE
     Route: 065
     Dates: start: 20200804
  5. CYTARABINE [Suspect]
     Active Substance: CYTARABINE
     Route: 065
     Dates: start: 20200603
  6. CYTARABINE [Suspect]
     Active Substance: CYTARABINE
     Route: 065
     Dates: start: 20201207, end: 20210902
  7. CYTARABINE [Suspect]
     Active Substance: CYTARABINE
     Route: 065
     Dates: start: 20240708
  8. MYCOPHENOLATE MOFETIL [Concomitant]
     Active Substance: MYCOPHENOLATE MOFETIL
     Indication: Chronic graft versus host disease in skin
     Route: 048
     Dates: start: 20190304
  9. MYCOPHENOLATE MOFETIL [Concomitant]
     Active Substance: MYCOPHENOLATE MOFETIL
     Route: 048
     Dates: start: 20190215
  10. PREDNISOLONE [Concomitant]
     Active Substance: PREDNISOLONE
     Indication: Chronic graft versus host disease in skin
     Dosage: 20/10 EVERY OTHER DAY
     Route: 065
     Dates: start: 20191030
  11. PREDNISOLONE [Concomitant]
     Active Substance: PREDNISOLONE
     Dosage: 20/10 EVERY OTHER DAY
     Route: 065
     Dates: start: 20191030
  12. PREDNISOLONE [Concomitant]
     Active Substance: PREDNISOLONE
     Route: 065
     Dates: start: 20200409
  13. PREDNISOLONE [Concomitant]
     Active Substance: PREDNISOLONE
     Route: 065
     Dates: start: 20190731
  14. VORICONAZOLE [Concomitant]
     Active Substance: VORICONAZOLE
     Indication: Bronchopulmonary aspergillosis
     Route: 065
     Dates: start: 20200331
  15. VORICONAZOLE [Concomitant]
     Active Substance: VORICONAZOLE
     Route: 065
  16. BISOPROLOL [Concomitant]
     Active Substance: BISOPROLOL
     Indication: Atrial flutter
     Route: 065
  17. DIGOXIN [Concomitant]
     Active Substance: DIGOXIN
     Indication: Atrial flutter
     Route: 065
  18. HYDROCORTISONE [Concomitant]
     Active Substance: HYDROCORTISONE
     Indication: Acute myeloid leukaemia recurrent
     Dosage: 2X/WEEK
  19. HYDROCORTISONE [Concomitant]
     Active Substance: HYDROCORTISONE
     Dosage: 1-2X/WEEK
     Dates: start: 20201207
  20. HYDROCORTISONE [Concomitant]
     Active Substance: HYDROCORTISONE
     Dosage: 1-2X/WEEK
     Dates: start: 20210716
  21. HYDROCORTISONE [Concomitant]
     Active Substance: HYDROCORTISONE
     Dosage: FOR THE FIRST 2 WEEKS
     Dates: start: 20210812, end: 20210902
  22. HYDROCORTISONE [Concomitant]
     Active Substance: HYDROCORTISONE
     Dosage: FOR THE FIRST 2 WEEKS
     Dates: start: 20240708

REACTIONS (13)
  - Death [Fatal]
  - Cholestasis [Recovering/Resolving]
  - Compartment syndrome [Unknown]
  - Acute myeloid leukaemia [Unknown]
  - Neurotoxicity [Recovered/Resolved]
  - Hyperferritinaemia [Unknown]
  - Blood creatine phosphokinase increased [Unknown]
  - Investigation abnormal [Unknown]
  - Vertigo [Unknown]
  - Ataxia [Unknown]
  - Vomiting [Unknown]
  - Off label use [Unknown]
  - Product use issue [Unknown]

NARRATIVE: CASE EVENT DATE: 20210101
